FAERS Safety Report 24959030 (Version 1)
Quarter: 2025Q1

REPORT INFORMATION
  Report Type: Spontaneous
  Country: CN (occurrence: CN)
  Receive Date: 20250212
  Receipt Date: 20250212
  Transmission Date: 20250409
  Serious: Yes (Other)
  Sender: MACLEODS
  Company Number: CN-MLMSERVICE-20250123-PI372267-00202-1

PATIENT

DRUGS (2)
  1. LINEZOLID [Suspect]
     Active Substance: LINEZOLID
     Indication: Lung abscess
     Route: 048
     Dates: start: 20240318, end: 20240407
  2. LINEZOLID [Suspect]
     Active Substance: LINEZOLID
     Indication: Lung abscess

REACTIONS (1)
  - Thrombocytopenia [Recovered/Resolved]

NARRATIVE: CASE EVENT DATE: 20240101
